FAERS Safety Report 24087061 (Version 1)
Quarter: 2024Q3

REPORT INFORMATION
  Report Type: Report from Study
  Country: US (occurrence: US)
  Receive Date: 20240713
  Receipt Date: 20240713
  Transmission Date: 20241016
  Serious: Yes (Other)
  Sender: AUROBINDO
  Company Number: US-AUROBINDO-AUR-APL-2024-033815

PATIENT
  Age: 65 Year
  Sex: Male

DRUGS (6)
  1. PREDNISONE [Suspect]
     Active Substance: PREDNISONE
     Indication: B precursor type acute leukaemia
     Dosage: 60 MILLIGRAM/SQ. METER (FROM DAYS 1-24, IN A 28 DAYS CYCLE) (DOSE OF ASCIMINIB, DASATINIB AND PREDNI
     Route: 065
  2. ASCIMINIB [Suspect]
     Active Substance: ASCIMINIB
     Indication: B precursor type acute leukaemia
     Dosage: 40 MILLIGRAM, DAILY (UNDER DL1) (FROM DAYS 1-24, IN A 28 DAYS CYCLE)
     Route: 065
  3. ASCIMINIB [Suspect]
     Active Substance: ASCIMINIB
     Dosage: 80 MILLIGRAM, DAILY (UNDER DL2) (IN A 28 DAYS CYCLE)
     Route: 065
  4. ASCIMINIB [Suspect]
     Active Substance: ASCIMINIB
     Dosage: 160 MILLIGRAM, DAILY (UNDER DL3) (IN A 28 DAYS CYCLE) (DOSE OF ASCIMINIB, DASATINIB AND PREDNISONE W
     Route: 065
  5. DASATINIB [Suspect]
     Active Substance: DASATINIB
     Indication: B precursor type acute leukaemia
     Dosage: 140 MILLIGRAM, DAILY (FROM DAYS 1-24, IN A 28 DAYS CYCLE) (DOSE OF ASCIMINIB, DASATINIB AND PREDNISO
     Route: 065
  6. BLINATUMOMAB [Concomitant]
     Active Substance: BLINATUMOMAB
     Indication: Product used for unknown indication
     Dosage: UNK
     Route: 065

REACTIONS (1)
  - Lipase increased [Unknown]
